FAERS Safety Report 4820525-4 (Version None)
Quarter: 2005Q4

REPORT INFORMATION
  Report Type: 
  Country: None (occurrence: None)
  Receive Date: 20051104
  Receipt Date: 20051027
  Transmission Date: 20060501
  Serious: Yes (Other)
  Sender: FDA-Public Use
  Company Number: PHBS2005BR16059

PATIENT

DRUGS (2)
  1. BROMOCRIPTINE MESYLATE [Suspect]
     Indication: PROLACTINOMA
  2. HIDANTAL [Suspect]

REACTIONS (4)
  - BLOOD PROLACTIN INCREASED [None]
  - CONVULSION [None]
  - DRUG INTERACTION [None]
  - PROLACTINOMA [None]
